FAERS Safety Report 10727952 (Version 1)
Quarter: 2015Q1

REPORT INFORMATION
  Report Type: Spontaneous
  Country: BR (occurrence: BR)
  Receive Date: 20150121
  Receipt Date: 20150121
  Transmission Date: 20150721
  Serious: Yes (Hospitalization)
  Sender: FDA-Public Use
  Company Number: BR-ELI_LILLY_AND_COMPANY-BR201501005720

PATIENT
  Age: 37 Year
  Sex: Female
  Weight: 65 kg

DRUGS (4)
  1. HUMULIN R [Suspect]
     Active Substance: INSULIN HUMAN
     Dosage: 3 IU, BEFORE LUNCH
     Route: 058
  2. HUMULIN N [Suspect]
     Active Substance: INSULIN HUMAN
     Dosage: 8 IU, EACH EVENING
     Route: 058
  3. HUMULIN N [Suspect]
     Active Substance: INSULIN HUMAN
     Indication: DIABETES MELLITUS
     Dosage: 16 IU, EACH MORNING
     Route: 058
  4. HUMULIN R [Suspect]
     Active Substance: INSULIN HUMAN
     Indication: DIABETES MELLITUS
     Dosage: 2 IU, EACH MORNING
     Route: 058

REACTIONS (1)
  - Blood glucose increased [Not Recovered/Not Resolved]

NARRATIVE: CASE EVENT DATE: 20150109
